FAERS Safety Report 14097325 (Version 3)
Quarter: 2018Q4

REPORT INFORMATION
  Report Type: Report from Study
  Country: IT (occurrence: IT)
  Receive Date: 20171017
  Receipt Date: 20181130
  Transmission Date: 20190204
  Serious: Yes (Life-Threatening, Hospitalization)
  Sender: FDA-Public Use
  Company Number: IT-ACCORD-059913

PATIENT
  Age: 57 Year
  Sex: Female

DRUGS (5)
  1. NOZINAN - SANOFI S.P.A. [Suspect]
     Active Substance: LEVOMEPROMAZINE MALEATE
     Dosage: STRENGTH: 25 MG
     Route: 048
     Dates: start: 20170911, end: 20170911
  2. ORAMORPH [Suspect]
     Active Substance: MORPHINE SULFATE
     Dosage: STRENGTH: 20 MG/ML
     Route: 048
     Dates: start: 20170911, end: 20170911
  3. QUETIAPINE. [Suspect]
     Active Substance: QUETIAPINE
     Dosage: INTAKE OF 40 DOSAGE FORM 150 MG
     Route: 048
     Dates: start: 20170911, end: 20170911
  4. DALMADORM - MEDA PHARMA S.P.A. [Suspect]
     Active Substance: FLURAZEPAM HYDROCHLORIDE
     Dosage: STRENGTH: 30 MG
     Route: 048
     Dates: start: 20170911, end: 20170911
  5. RIVOTRIL [Suspect]
     Active Substance: CLONAZEPAM
     Dosage: STRENGTH: 2 MG
     Route: 048
     Dates: start: 20170911, end: 20170911

REACTIONS (6)
  - Hypoxia [Unknown]
  - Hypotension [Unknown]
  - Drug abuse [Unknown]
  - Loss of consciousness [Unknown]
  - Electrocardiogram QT prolonged [Unknown]
  - Hypokalaemia [Unknown]

NARRATIVE: CASE EVENT DATE: 20170911
